FAERS Safety Report 10386956 (Version 2)
Quarter: 2014Q3

REPORT INFORMATION
  Report Type: Spontaneous
  Country: US (occurrence: US)
  Receive Date: 20140815
  Receipt Date: 20140912
  Transmission Date: 20150326
  Serious: No
  Sender: FDA-Public Use
  Company Number: US-PFIZER INC-2014223333

PATIENT
  Age: 69 Year
  Sex: Male

DRUGS (2)
  1. PLAQUENIL [Concomitant]
     Active Substance: HYDROXYCHLOROQUINE SULFATE
     Indication: RHEUMATOID ARTHRITIS
     Dosage: 200 MG, 2X/DAY
     Dates: start: 20110503, end: 20110628
  2. AZULFIDINE [Suspect]
     Active Substance: SULFASALAZINE
     Dosage: 1000 MG, 2X/DAY (500MG 2 TABS BID)
     Route: 048
     Dates: start: 20110606, end: 20110613

REACTIONS (4)
  - Malaise [Unknown]
  - Sleep disorder [Recovered/Resolved]
  - Dysuria [Recovered/Resolved]
  - Drug hypersensitivity [Recovered/Resolved]

NARRATIVE: CASE EVENT DATE: 20110606
